FAERS Safety Report 11811652 (Version 1)
Quarter: 2015Q4

REPORT INFORMATION
  Report Type: Spontaneous
  Country: TR (occurrence: TR)
  Receive Date: 20151208
  Receipt Date: 20151208
  Transmission Date: 20160305
  Serious: Yes (Death)
  Sender: FDA-Public Use
  Company Number: TR-ABBVIE-15P-161-1515446-00

PATIENT
  Age: 68 Year
  Weight: 78 kg

DRUGS (3)
  1. MONOPRIL [Interacting]
     Active Substance: FOSINOPRIL SODIUM
     Indication: HYPERTENSION
     Route: 048
     Dates: start: 201512, end: 20151203
  2. TARKA [Suspect]
     Active Substance: TRANDOLAPRIL\VERAPAMIL HYDROCHLORIDE
     Indication: HYPERTENSION
     Dosage: 180/2 MG
     Route: 048
     Dates: start: 201512, end: 20151203
  3. DILATREND [Interacting]
     Active Substance: CARVEDILOL
     Indication: HYPERTENSION
     Route: 048
     Dates: end: 20151203

REACTIONS (3)
  - Cardiac arrest [Fatal]
  - Bradycardia [Fatal]
  - Drug interaction [Fatal]

NARRATIVE: CASE EVENT DATE: 20151203
